FAERS Safety Report 9167760 (Version 4)
Quarter: 2013Q3

REPORT INFORMATION
  Report Type: Spontaneous
  Country: BE (occurrence: BE)
  Receive Date: 20130318
  Receipt Date: 20130820
  Transmission Date: 20140515
  Serious: Yes (Other)
  Sender: FDA-Public Use
  Company Number: PHHY2013BE025034

PATIENT
  Sex: Female

DRUGS (8)
  1. ZOMETA [Suspect]
     Indication: PLASMA CELL MYELOMA
     Dosage: 4 MG, EVERY THREE MONTH
     Dates: start: 2002, end: 201105
  2. ARICEPT [Concomitant]
     Dosage: 10 MG, UNK
     Route: 048
  3. ASAFLOW [Concomitant]
     Dosage: 80 MG, UNK
     Route: 048
  4. FRAXIPARINE [Concomitant]
     Dosage: 3800 IU ANTI-XA/0.4 ML
     Route: 058
  5. BISOPROLOL [Concomitant]
     Dosage: UNK UKN, UNK
     Route: 048
  6. CRESTOR [Concomitant]
     Dosage: 10 MG, UNK
     Route: 048
  7. PANTOMED//PANTOPRAZOLE SODIUM SESQUIHYDRATE [Concomitant]
     Dosage: 40 MG, UNK
     Route: 048
  8. PREDNISOLONE [Concomitant]
     Dosage: UNK UKN, UNK
     Dates: start: 200807

REACTIONS (11)
  - Osteonecrosis of jaw [Not Recovered/Not Resolved]
  - Oroantral fistula [Unknown]
  - Cellulitis [Unknown]
  - Breath odour [Unknown]
  - Decreased appetite [Unknown]
  - Erythema [Unknown]
  - Swelling [Unknown]
  - Pain [Unknown]
  - Lymphadenopathy [Unknown]
  - Soft tissue infection [Unknown]
  - Rhinorrhoea [Unknown]
